FAERS Safety Report 6164592-7 (Version None)
Quarter: 2009Q2

REPORT INFORMATION
  Report Type: 
  Country: None (occurrence: None)
  Receive Date: 20090423
  Receipt Date: 20090416
  Transmission Date: 20091009
  Serious: Yes (Hospitalization)
  Sender: FDA-Public Use
  Company Number: IE-ELI_LILLY_AND_COMPANY-IE200904003272

PATIENT
  Age: 67 Year
  Sex: Male

DRUGS (11)
  1. BYETTA [Suspect]
     Indication: TYPE 2 DIABETES MELLITUS
     Dosage: UNK, UNKNOWN
     Route: 048
     Dates: start: 20090219, end: 20090302
  2. LIPITOR [Concomitant]
     Dosage: 80 MG, UNKNOWN
     Route: 065
  3. CITALOPRAM HYDROBROMIDE [Concomitant]
     Dosage: UNK, UNKNOWN
     Route: 065
  4. CARBAMAZEPINE [Concomitant]
     Dosage: UNK, UNKNOWN
     Route: 065
  5. PERINDOPRIL ERBUMINE [Concomitant]
     Dosage: 5 MG, UNKNOWN
     Route: 065
  6. ASPIRIN [Concomitant]
     Dosage: UNK, UNKNOWN
     Route: 065
  7. ASPIRIN [Concomitant]
     Dosage: UNK, UNKNOWN
     Route: 065
  8. VARDENAFIL [Concomitant]
     Dosage: UNK, UNKNOWN
     Route: 065
  9. IBUPROFEN [Concomitant]
     Dosage: UNK, UNKNOWN
     Route: 065
  10. ATENOLOL [Concomitant]
     Dosage: UNK, UNKNOWN
     Route: 065
  11. EZETIMIBE [Concomitant]
     Dosage: UNK, UNKNOWN
     Route: 065

REACTIONS (1)
  - PANCREATITIS [None]
